FAERS Safety Report 24297071 (Version 1)
Quarter: 2024Q3

REPORT INFORMATION
  Report Type: Report from Study
  Country: CN (occurrence: CN)
  Receive Date: 20240909
  Receipt Date: 20240909
  Transmission Date: 20241017
  Serious: Yes (Other)
  Sender: TAKEDA
  Company Number: CN-TAKEDA-2024TUS087666

PATIENT
  Age: 75 Year
  Sex: Male
  Weight: 60 kg

DRUGS (15)
  1. IXAZOMIB [Suspect]
     Active Substance: IXAZOMIB
     Indication: Plasma cell myeloma
     Dosage: 3 MILLIGRAM
     Route: 048
     Dates: start: 20240122
  2. DEXAMETHASONE [Suspect]
     Active Substance: DEXAMETHASONE
     Indication: Plasma cell myeloma
     Dosage: 10 MILLIGRAM
     Route: 048
     Dates: start: 20240122
  3. LENALIDOMIDE [Suspect]
     Active Substance: LENALIDOMIDE
     Indication: Plasma cell myeloma
     Dosage: 25 MILLIGRAM
     Route: 048
     Dates: start: 20240122
  4. ASPIRIN [Concomitant]
     Active Substance: ASPIRIN
     Indication: Thrombosis prophylaxis
     Dosage: 100 MILLIGRAM, QD
     Route: 048
     Dates: start: 20230831
  5. TRAMADOL HYDROCHLORIDE [Concomitant]
     Active Substance: TRAMADOL HYDROCHLORIDE
     Indication: Resorption bone increased
     Dosage: 0.1 GRAM, QD
     Route: 048
     Dates: start: 20230915
  6. ONDANSETRON HYDROCHLORIDE [Concomitant]
     Active Substance: ONDANSETRON HYDROCHLORIDE
     Indication: Prophylaxis of nausea and vomiting
     Dosage: 4 MILLIGRAM, QD
     Route: 048
     Dates: start: 20240117
  7. METHYLCOBALAMIN [Concomitant]
     Active Substance: METHYLCOBALAMIN
     Indication: Prophylaxis
     Dosage: 0.5 MILLIGRAM, TID
     Route: 048
     Dates: start: 20230917
  8. CALCIUM CARBONATE\CHOLECALCIFEROL [Concomitant]
     Active Substance: CALCIUM CARBONATE\CHOLECALCIFEROL
     Indication: Mineral supplementation
     Dosage: 300 MILLIGRAM, BID
     Route: 048
     Dates: start: 20240117
  9. GLYCYRRHIZIN [Concomitant]
     Active Substance: GLYCYRRHIZIN
     Indication: Prophylaxis
     Dosage: 150 MILLIGRAM, TID
     Route: 048
     Dates: start: 20230915
  10. Diamine [Concomitant]
     Indication: Prophylaxis
     Dosage: 150 MILLIGRAM, QD
     Route: 048
     Dates: start: 20230915
  11. OMEPRAZOLE [Concomitant]
     Active Substance: OMEPRAZOLE
     Indication: Prophylaxis
     Dosage: 20 MILLIGRAM, QD
     Route: 048
     Dates: start: 20230915
  12. ACYCLOVIR [Concomitant]
     Active Substance: ACYCLOVIR
     Indication: Prophylaxis
     Dosage: UNK UNK, QD
     Route: 048
     Dates: start: 20230915
  13. IBANDRONATE SODIUM [Concomitant]
     Active Substance: IBANDRONATE SODIUM
     Indication: Prophylaxis
     Dosage: 4 MILLIGRAM
     Route: 041
     Dates: start: 20240220, end: 20240220
  14. FEBUXOSTAT [Concomitant]
     Active Substance: FEBUXOSTAT
     Indication: Hyperuricaemia
     Dosage: 40 MILLIGRAM, QD
     Route: 048
     Dates: start: 20240220
  15. FLURBIPROFEN [Concomitant]
     Active Substance: FLURBIPROFEN
     Indication: Resorption bone increased
     Dosage: UNK UNK, QD
     Route: 062
     Dates: start: 20240117, end: 20240128

REACTIONS (2)
  - Nephrolithiasis [Not Recovered/Not Resolved]
  - Intervertebral disc protrusion [Not Recovered/Not Resolved]

NARRATIVE: CASE EVENT DATE: 20240222
